FAERS Safety Report 12313387 (Version 2)
Quarter: 2016Q2

REPORT INFORMATION
  Report Type: Report from Study
  Country: AR (occurrence: AR)
  Receive Date: 20160428
  Receipt Date: 20160511
  Transmission Date: 20160815
  Serious: Yes (Other)
  Sender: FDA-Public Use
  Company Number: PHHY2016AR055579

PATIENT
  Sex: Female

DRUGS (2)
  1. DIOVAN [Suspect]
     Active Substance: VALSARTAN
     Indication: CARDIAC DISORDER
     Dosage: 1 DF, QD (1 YEAR AGO)
     Route: 065
  2. SEEBRI BREEZHALER [Suspect]
     Active Substance: GLYCOPYRROLATE
     Indication: ASPHYXIA
     Dosage: 1 DF, QD (ALMOST ONE MONTH AGO)
     Route: 065

REACTIONS (7)
  - Arterial occlusive disease [Unknown]
  - Cardiac disorder [Unknown]
  - Agitation [Unknown]
  - Asphyxia [Unknown]
  - Dyspnoea [Unknown]
  - Speech disorder [Unknown]
  - Off label use [Unknown]
